FAERS Safety Report 4892251-7 (Version None)
Quarter: 2006Q1

REPORT INFORMATION
  Report Type: 
  Country: None (occurrence: None)
  Receive Date: 20060123
  Receipt Date: 20060112
  Transmission Date: 20060701
  Serious: Yes (Hospitalization)
  Sender: FDA-Public Use
  Company Number: 2006005938

PATIENT
  Age: 58 Year
  Sex: Male

DRUGS (16)
  1. NEURONTIN (GABAPENTIN) [Suspect]
     Indication: ILL-DEFINED DISORDER
     Dosage: 2400 MG (DAILY), ORAL
     Route: 048
  2. ATARAX [Suspect]
     Indication: ILL-DEFINED DISORDER
     Dosage: 400 MG DAILY, ORAL
     Route: 048
  3. MORPHINE [Suspect]
     Indication: ILL-DEFINED DISORDER
     Dosage: 140 MG, DAILY, ORAL
     Route: 048
  4. TRAMADOL HCL [Suspect]
     Indication: ILL-DEFINED DISORDER
     Dosage: 400 MG DAILY, ORAL
     Route: 048
  5. NOCTRAN 10 (ACEPROMAZINE, ACEPROMETAZINE, CLORAZEPATE DIPOTASSIUM) [Suspect]
     Indication: ILL-DEFINED DISORDER
     Dosage: 2 DF  DAILY, ORAL
     Route: 048
  6. RISPERDAL [Suspect]
     Indication: ILL-DEFINED DISORDER
     Dosage: 4 MG DAILY
  7. MIRTAZAPINE [Concomitant]
  8. VALPROATE SODIUM [Concomitant]
  9. ALDACTONE [Concomitant]
  10. POTASSIUM CHLORIDE [Concomitant]
  11. BUMETANIDE [Concomitant]
  12. TAHOR (ATORVASTATIN) [Concomitant]
  13. ALLOPURINOL [Concomitant]
  14. DOLIOPRANE (PARACETAMOL) [Concomitant]
  15. EUPRESSYL (URAPIDIL) [Concomitant]
  16. IMOVANE (ZOPICLONE) [Concomitant]

REACTIONS (2)
  - DRUG ABUSER [None]
  - DRUG DEPENDENCE [None]
